FAERS Safety Report 10905288 (Version 2)
Quarter: 2015Q1

REPORT INFORMATION
  Report Type: Report from Study
  Country: TW (occurrence: TW)
  Receive Date: 20150311
  Receipt Date: 20150312
  Transmission Date: 20150721
  Serious: Yes (Hospitalization, Other)
  Sender: FDA-Public Use
  Company Number: PHHY2013TW088128

PATIENT
  Age: 82 Year
  Sex: Female
  Weight: 54 kg

DRUGS (1)
  1. ACLASTA [Suspect]
     Active Substance: ZOLEDRONIC ACID
     Indication: OSTEOPOROSIS
     Dosage: 5 MG, UNK
     Route: 042
     Dates: start: 20120523, end: 20140526

REACTIONS (16)
  - Fall [Recovered/Resolved]
  - Microcytic anaemia [Unknown]
  - Dizziness [Recovering/Resolving]
  - Head injury [Recovered/Resolved]
  - Contusion [Recovered/Resolved]
  - Lacunar infarction [Unknown]
  - Demyelination [Unknown]
  - Haemoglobin decreased [Unknown]
  - Blood creatinine increased [Unknown]
  - Motor dysfunction [Unknown]
  - Aphasia [Unknown]
  - Loss of consciousness [Unknown]
  - Cerebrovascular accident [Recovered/Resolved]
  - Abasia [Recovered/Resolved]
  - Speech disorder [Unknown]
  - Dysarthria [Recovered/Resolved]

NARRATIVE: CASE EVENT DATE: 20130529
